FAERS Safety Report 8058427-5 (Version None)
Quarter: 2012Q1

REPORT INFORMATION
  Report Type: 
  Country: None (occurrence: None)
  Receive Date: 20120120
  Receipt Date: 20120113
  Transmission Date: 20120608
  Serious: Yes (Hospitalization)
  Sender: FDA-Public Use
  Company Number: FR-PFIZER INC-2012011535

PATIENT
  Age: 55 Year
  Sex: Male

DRUGS (2)
  1. AMSALYO [Suspect]
     Indication: ACUTE MYELOID LEUKAEMIA
     Dosage: 171 MG, 1X/DAY
     Dates: start: 20111104, end: 20111108
  2. CYTARABINE [Suspect]
     Indication: ACUTE MYELOID LEUKAEMIA
     Dosage: 2150 MG, 2X/DAY
     Route: 042
     Dates: start: 20111104, end: 20111107

REACTIONS (1)
  - SEPSIS [None]
